FAERS Safety Report 4922031-5 (Version None)
Quarter: 2006Q1

REPORT INFORMATION
  Report Type: 
  Country: None (occurrence: None)
  Receive Date: 20060221
  Receipt Date: 20060208
  Transmission Date: 20060701
  Serious: Yes (Other)
  Sender: FDA-Public Use
  Company Number: 2006020290

PATIENT
  Age: 69 Year
  Sex: Female
  Weight: 79.3795 kg

DRUGS (3)
  1. LIPITOR [Suspect]
     Indication: ILL-DEFINED DISORDER
     Dosage: 10 MG (10 MG, 1 IN 1 D)
     Dates: start: 20050401
  2. MAXZIDE [Suspect]
     Indication: HYPERTENSION
     Dates: end: 20060101
  3. EVISTA [Concomitant]

REACTIONS (7)
  - CHEST DISCOMFORT [None]
  - CHOLELITHIASIS [None]
  - DYSPEPSIA [None]
  - INFLUENZA LIKE ILLNESS [None]
  - RENAL IMPAIRMENT [None]
  - STOMACH DISCOMFORT [None]
  - URINE ABNORMALITY [None]
